FAERS Safety Report 25087946 (Version 1)
Quarter: 2025Q1

REPORT INFORMATION
  Report Type: Report from Study
  Country: AR (occurrence: AR)
  Receive Date: 20250318
  Receipt Date: 20250318
  Transmission Date: 20250408
  Serious: Yes (Death)
  Sender: AMGEN
  Company Number: AR-AMGEN-ARGSL2025051379

PATIENT
  Age: 65 Year
  Sex: Male

DRUGS (1)
  1. VECTIBIX [Suspect]
     Active Substance: PANITUMUMAB
     Indication: Colorectal cancer
     Route: 065
     Dates: start: 20241205

REACTIONS (4)
  - Death [Fatal]
  - Skin lesion [Unknown]
  - Mouth injury [Unknown]
  - Dysphagia [Unknown]
